FAERS Safety Report 17835338 (Version 10)
Quarter: 2022Q1

REPORT INFORMATION
  Report Type: Report from Study
  Country: US (occurrence: US)
  Receive Date: 20200528
  Receipt Date: 20220305
  Transmission Date: 20220423
  Serious: Yes (Other)
  Sender: FDA-Public Use
  Company Number: NVSC2020US141434

PATIENT
  Age: 43 Year
  Sex: Female
  Weight: 61.3 kg

DRUGS (3)
  1. MAYZENT [Suspect]
     Active Substance: SIPONIMOD
     Indication: Multiple sclerosis
     Dosage: 2 MG, QD
     Route: 048
     Dates: start: 20200312
  2. MAYZENT [Suspect]
     Active Substance: SIPONIMOD
     Dosage: 2 MG, QD
     Route: 048
     Dates: start: 20200410, end: 20200710
  3. MAYZENT [Suspect]
     Active Substance: SIPONIMOD
     Dosage: 2 MG, QD
     Route: 048

REACTIONS (19)
  - Multiple sclerosis relapse [Unknown]
  - Paraesthesia [Recovering/Resolving]
  - Stress [Recovering/Resolving]
  - COVID-19 [Recovered/Resolved with Sequelae]
  - Oropharyngeal pain [Recovered/Resolved with Sequelae]
  - Pyrexia [Recovered/Resolved with Sequelae]
  - Sinusitis [Recovered/Resolved with Sequelae]
  - Abdominal pain [Unknown]
  - Muscle spasms [Unknown]
  - Skin burning sensation [Unknown]
  - Memory impairment [Unknown]
  - Sensitivity to weather change [Unknown]
  - Lethargy [Unknown]
  - Hepatic enzyme increased [Recovered/Resolved]
  - Fatigue [Recovered/Resolved with Sequelae]
  - Fatigue [Recovered/Resolved with Sequelae]
  - Pain [Recovered/Resolved with Sequelae]
  - Product dose omission in error [Unknown]
  - Inappropriate schedule of product administration [Unknown]

NARRATIVE: CASE EVENT DATE: 20201104
